FAERS Safety Report 10185900 (Version 1)
Quarter: 2014Q2

REPORT INFORMATION
  Report Type: Spontaneous
  Country: US (occurrence: US)
  Receive Date: 20140521
  Receipt Date: 20140521
  Transmission Date: 20141212
  Serious: Yes (Other)
  Sender: FDA-Public Use
  Company Number: US-ACTAVIS-2014-10103

PATIENT
  Age: 58 Year
  Sex: Female

DRUGS (12)
  1. CLONIDINE (WATSON LABORATORIES) [Suspect]
     Indication: PRODUCT USED FOR UNKNOWN INDICATION
     Dosage: 0.2 MG, BID
     Route: 065
  2. TAPENTADOL [Interacting]
     Indication: NEUROPATHY PERIPHERAL
     Dosage: 50 MG, UNKNOWN
     Route: 065
  3. CARBOPLATIN (WATSON LABORATORIES) [Suspect]
     Indication: ENDOMETRIAL CANCER
     Dosage: UNKNOWN
     Route: 065
     Dates: start: 2010
  4. PACLITAXEL (ATLLC) [Suspect]
     Indication: ENDOMETRIAL CANCER
     Dosage: UNKNOWN
     Route: 065
     Dates: start: 2010
  5. TRIAMTERENE AND HYDROCHLOROTHIAZIDE [Concomitant]
     Indication: PRODUCT USED FOR UNKNOWN INDICATION
     Dosage: UNKNOWN - DAILY
     Route: 065
  6. VALSARTAN [Concomitant]
     Indication: PRODUCT USED FOR UNKNOWN INDICATION
     Dosage: UNKNOWN - DAILY
     Route: 065
  7. CALCIUM CITRATE + D [Concomitant]
     Indication: PRODUCT USED FOR UNKNOWN INDICATION
     Dosage: UNKNOWN - DAILY
     Route: 065
  8. CELECOXIB [Concomitant]
     Indication: PRODUCT USED FOR UNKNOWN INDICATION
     Dosage: UNKNOWN
     Route: 065
  9. DEXAMETHASONE [Concomitant]
     Indication: PRODUCT USED FOR UNKNOWN INDICATION
     Dosage: UNKNOWN
     Route: 065
  10. DIPHENHYDRAMINE [Concomitant]
     Indication: PRODUCT USED FOR UNKNOWN INDICATION
     Dosage: UNKNOWN
     Route: 065
  11. RANITIDINE [Concomitant]
     Indication: PRODUCT USED FOR UNKNOWN INDICATION
     Dosage: UNKNOWN
     Route: 065
  12. PALONOSETRON [Concomitant]
     Indication: PRODUCT USED FOR UNKNOWN INDICATION
     Dosage: UNKNOWN
     Route: 065

REACTIONS (3)
  - Hypertension [Recovered/Resolved]
  - Neuropathy peripheral [Unknown]
  - Drug interaction [Recovered/Resolved]
